FAERS Safety Report 10169061 (Version 2)
Quarter: 2014Q2

REPORT INFORMATION
  Report Type: Spontaneous
  Country: US (occurrence: US)
  Receive Date: 20140513
  Receipt Date: 20140526
  Transmission Date: 20141212
  Serious: Yes (Other)
  Sender: FDA-Public Use
  Company Number: PHEH2014US009452

PATIENT
  Sex: Female

DRUGS (2)
  1. EXJADE [Suspect]
     Indication: IRON OVERLOAD
     Dosage: UNK UKN, UNK
     Route: 048
     Dates: start: 2008, end: 2013
  2. JAKAVI [Concomitant]
     Indication: MYELOFIBROSIS
     Dosage: UNK UKN, UNK
     Route: 048

REACTIONS (11)
  - Nephrotic syndrome [Not Recovered/Not Resolved]
  - Proteinuria [Not Recovered/Not Resolved]
  - Glomerulosclerosis [Unknown]
  - Fibrosis [Unknown]
  - Focal segmental glomerulosclerosis [Unknown]
  - Renal injury [Unknown]
  - Renal atrophy [Unknown]
  - Splenomegaly [Unknown]
  - Anaemia [Unknown]
  - Thrombocytopenia [Unknown]
  - Pancytopenia [Unknown]
